FAERS Safety Report 22319578 (Version 2)
Quarter: 2023Q2

REPORT INFORMATION
  Report Type: Report from Study
  Country: US (occurrence: None)
  Receive Date: 20230515
  Receipt Date: 20230616
  Transmission Date: 20230722
  Serious: Yes (Death, Hospitalization, Disabling, Other)
  Sender: FDA-Public Use
  Company Number: 2023A109679

PATIENT
  Age: 89 Year
  Sex: Male
  Weight: 45.4 kg

DRUGS (1)
  1. SYMBICORT [Suspect]
     Active Substance: BUDESONIDE\FORMOTEROL FUMARATE DIHYDRATE
     Indication: Chronic obstructive pulmonary disease
     Dosage: DAILY
     Route: 055
     Dates: end: 20220823

REACTIONS (2)
  - Hip fracture [Fatal]
  - Infection [Fatal]

NARRATIVE: CASE EVENT DATE: 20220831
